FAERS Safety Report 10242136 (Version 2)
Quarter: 2015Q1

REPORT INFORMATION
  Report Type: Spontaneous
  Country: US (occurrence: None)
  Receive Date: 20140616
  Receipt Date: 20150204
  Transmission Date: 20150720
  Serious: Yes (Other)
  Sender: FDA-Public Use
  Company Number: 2014CT000062

PATIENT
  Age: 39 Year
  Sex: Female

DRUGS (1)
  1. KORLYM [Suspect]
     Active Substance: MIFEPRISTONE
     Indication: PITUITARY-DEPENDENT CUSHING^S SYNDROME
     Route: 048
     Dates: start: 20121121

REACTIONS (7)
  - Oedema [None]
  - Nausea [None]
  - Pituitary cancer metastatic [None]
  - Metastases to spine [None]
  - Headache [None]
  - Vomiting [None]
  - Blood pressure increased [None]
